FAERS Safety Report 7365580 (Version 2)
Quarter: 2014Q1

REPORT INFORMATION
  Report Type: Spontaneous
  Country: US (occurrence: US)
  Receive Date: 20100426
  Receipt Date: 20140110
  Transmission Date: 20141002
  Serious: Yes (Other)
  Sender: FDA-Public Use
  Company Number: US-BAYER-201020088NA

PATIENT
  Age: 33 Year
  Sex: Female

DRUGS (8)
  1. YAZ [Suspect]
     Indication: PRODUCT USED FOR UNKNOWN INDICATION
     Dates: start: 200604, end: 200703
  2. YASMIN [Suspect]
     Indication: PRODUCT USED FOR UNKNOWN INDICATION
     Dates: start: 200604, end: 200703
  3. ZOLOFT [Concomitant]
     Dosage: 50 MG, UNK
     Route: 048
  4. MIDRIN [Concomitant]
     Indication: MIGRAINE
     Dosage: UNK UNK, PRN
     Route: 048
  5. PHENERGAN [Concomitant]
  6. LOMOTIL [DIPHENOXYLATE HYDROCHLORIDE] [Concomitant]
  7. ACIPHEX [Concomitant]
  8. SYMAX [Concomitant]

REACTIONS (2)
  - Biliary dyskinesia [None]
  - Gallbladder operation [Unknown]
